FAERS Safety Report 11591157 (Version 2)
Quarter: 2015Q4

REPORT INFORMATION
  Report Type: Spontaneous
  Country: IT (occurrence: IT)
  Receive Date: 20151003
  Receipt Date: 20151016
  Transmission Date: 20160304
  Serious: Yes (Hospitalization, Other)
  Sender: FDA-Public Use
  Company Number: IT-BRISTOL-MYERS SQUIBB COMPANY-BMS-2015-063864

PATIENT
  Age: 51 Year
  Sex: Male
  Weight: 70 kg

DRUGS (2)
  1. TRUVADA [Suspect]
     Active Substance: EMTRICITABINE\TENOFOVIR DISOPROXIL FUMARATE
     Indication: ACQUIRED IMMUNODEFICIENCY SYNDROME
     Dosage: 1 UNIT, QD
     Route: 048
     Dates: start: 20080118, end: 20110922
  2. REYATAZ [Suspect]
     Active Substance: ATAZANAVIR SULFATE
     Indication: ACQUIRED IMMUNODEFICIENCY SYNDROME
     Dosage: 2 UNIT, QD
     Route: 048
     Dates: start: 20080118, end: 20110922

REACTIONS (2)
  - Hip arthroplasty [Unknown]
  - Osteonecrosis [Recovering/Resolving]

NARRATIVE: CASE EVENT DATE: 20100302
